FAERS Safety Report 9663570 (Version 1)
Quarter: 2013Q4

REPORT INFORMATION
  Report Type: Spontaneous
  Country: US (occurrence: US)
  Receive Date: 20131101
  Receipt Date: 20131101
  Transmission Date: 20140711
  Serious: No
  Sender: FDA-Public Use
  Company Number: US-PFIZER INC-2013311891

PATIENT
  Sex: Female

DRUGS (3)
  1. XELJANZ [Suspect]
     Dosage: 5 MG, UNK
  2. PREDNISONE [Concomitant]
     Dosage: UNK
  3. ARAVA [Concomitant]
     Dosage: UNK

REACTIONS (4)
  - Headache [Recovered/Resolved]
  - Sinus headache [Recovered/Resolved]
  - Neck pain [Recovered/Resolved]
  - Hypertension [Recovered/Resolved]
